FAERS Safety Report 4986034-7 (Version None)
Quarter: 2006Q1

REPORT INFORMATION
  Report Type: 
  Country: None (occurrence: None)
  Receive Date: 20060309
  Receipt Date: 20050606
  Transmission Date: 20060701
  Serious: Yes (Other)
  Sender: FDA-Public Use
  Company Number: 407055

PATIENT
  Age: 20 Year
  Sex: Male
  Weight: 68 kg

DRUGS (1)
  1. ACCUTANE [Suspect]
     Indication: ACNE CYSTIC
     Dosage: 1 DOSE FORM 3 PER DAY ORAL
     Route: 048
     Dates: start: 20041021, end: 20050601

REACTIONS (2)
  - BLOOD TRIGLYCERIDES INCREASED [None]
  - CONVULSION [None]
